FAERS Safety Report 7443124-7 (Version None)
Quarter: 2011Q2

REPORT INFORMATION
  Report Type: 
  Country: None (occurrence: None)
  Receive Date: 20110428
  Receipt Date: 20110425
  Transmission Date: 20111010
  Serious: Yes (Hospitalization, Congenital Anomaly)
  Sender: FDA-Public Use
  Company Number: A0689063A

PATIENT
  Sex: Male
  Weight: 3 kg

DRUGS (3)
  1. RHOGAM [Concomitant]
     Route: 064
  2. PAXIL [Suspect]
     Dosage: 10MG PER DAY
     Route: 064
     Dates: start: 19990101
  3. PRENATAL VITAMINS [Concomitant]
     Route: 064

REACTIONS (19)
  - FAILURE TO THRIVE [None]
  - COGNITIVE DISORDER [None]
  - SPEECH DISORDER DEVELOPMENTAL [None]
  - DEVELOPMENTAL DELAY [None]
  - ANXIETY [None]
  - CARDIAC MURMUR [None]
  - HEART DISEASE CONGENITAL [None]
  - VENTRICULAR SEPTAL DEFECT [None]
  - CYTOGENETIC ABNORMALITY [None]
  - PAIN [None]
  - MOTOR DEVELOPMENTAL DELAY [None]
  - CONGENITAL AORTIC ANOMALY [None]
  - PULMONARY VALVE STENOSIS [None]
  - ASTHENIA [None]
  - BALANCE DISORDER [None]
  - DRUG EXPOSURE DURING PREGNANCY [None]
  - FALLOT'S TETRALOGY [None]
  - ATRIAL SEPTAL DEFECT [None]
  - EMOTIONAL DISTRESS [None]
